FAERS Safety Report 5157585-X (Version None)
Quarter: 2006Q4

REPORT INFORMATION
  Report Type: 
  Country: None (occurrence: None)
  Receive Date: 20061127
  Receipt Date: 20061121
  Transmission Date: 20070319
  Serious: Yes (Other)
  Sender: FDA-Public Use
  Company Number: DE-GLAXOSMITHKLINE-D0051552A

PATIENT
  Age: 44 Year
  Sex: Male

DRUGS (2)
  1. QUILONUM RETARD [Suspect]
     Route: 048
     Dates: start: 20061101, end: 20061101
  2. MIRTAZAPINE [Suspect]
     Route: 048
     Dates: start: 20061101, end: 20061101

REACTIONS (3)
  - AGITATION [None]
  - DRUG ABUSER [None]
  - SOMNOLENCE [None]
